FAERS Safety Report 6778881-6 (Version None)
Quarter: 2010Q2

REPORT INFORMATION
  Report Type: 
  Country: None (occurrence: None)
  Receive Date: 20100618
  Receipt Date: 20100609
  Transmission Date: 20101027
  Serious: Yes (Hospitalization)
  Sender: FDA-Public Use
  Company Number: US-JNJFOC-20100603565

PATIENT
  Sex: Female
  Weight: 54.43 kg

DRUGS (10)
  1. LEVAQUIN [Suspect]
     Indication: INFECTION
     Route: 065
  2. DURAGESIC-100 [Suspect]
     Indication: PAIN
     Route: 062
  3. DIAZEPAM [Concomitant]
     Indication: ANXIETY
     Route: 048
  4. DILANTIN [Concomitant]
     Indication: CONVULSION
     Route: 048
  5. NEXIUM [Concomitant]
     Indication: GASTRIC DISORDER
     Route: 048
  6. OXYCODONE [Concomitant]
     Indication: BREAKTHROUGH PAIN
     Route: 065
  7. NEORAL [Concomitant]
     Indication: IMMUNOSUPPRESSION
     Route: 048
  8. LOVENOX [Concomitant]
     Indication: COAGULOPATHY
     Route: 065
  9. DAPSONE [Concomitant]
     Indication: PNEUMOCYSTIS JIROVECI PNEUMONIA
     Route: 065
  10. PREDNISONE [Concomitant]
     Indication: IMMUNOSUPPRESSION
     Route: 048

REACTIONS (4)
  - COAGULOPATHY [None]
  - LIVER DISORDER [None]
  - PALPITATIONS [None]
  - PNEUMOCYSTIS JIROVECI PNEUMONIA [None]
